FAERS Safety Report 8855030 (Version 6)
Quarter: 2013Q1

REPORT INFORMATION
  Report Type: Spontaneous
  Country: US (occurrence: US)
  Receive Date: 20121023
  Receipt Date: 20130319
  Transmission Date: 20140127
  Serious: No
  Sender: FDA-Public Use
  Company Number: US-VERTEX PHARMACEUTICAL INC.-2012-023266

PATIENT
  Age: 56 Year
  Sex: Female
  Weight: 62 kg

DRUGS (12)
  1. INCIVEK [Suspect]
     Indication: HEPATITIS C
     Dosage: 750 MG, TID
     Route: 048
     Dates: start: 20121014
  2. PEGASYS [Suspect]
     Indication: HEPATITIS C
     Dosage: 180 ?G, QW
     Route: 058
     Dates: start: 20121014
  3. RIBAPAK [Suspect]
     Indication: HEPATITIS C
     Dosage: 600 MG, BID
     Route: 048
     Dates: start: 20121014
  4. NORVASC [Concomitant]
     Indication: HYPERTENSION
     Dosage: 5 MG, QD
     Route: 048
  5. ASPIRIN [Concomitant]
  6. CALCIUM                            /00060701/ [Concomitant]
  7. MORPHINE [Concomitant]
  8. NORCO [Concomitant]
     Dosage: 1 DF, UNK
  9. TOPROL XL [Concomitant]
     Dosage: 25 MG, UNK
  10. VITAMIN D /00107901/ [Concomitant]
     Dosage: 1000 UT, UNK
  11. ZOCOR [Concomitant]
     Dosage: 40 MG, QD
  12. DICLOXACILLIN [Concomitant]
     Dosage: 500 MG, UNK

REACTIONS (19)
  - Dyspnoea [Unknown]
  - Depression [Unknown]
  - Oesophageal spasm [Not Recovered/Not Resolved]
  - Anxiety [Unknown]
  - Rheumatoid arthritis [Unknown]
  - Pyrexia [Not Recovered/Not Resolved]
  - Arthralgia [Not Recovered/Not Resolved]
  - Pain in extremity [Not Recovered/Not Resolved]
  - Cough [Not Recovered/Not Resolved]
  - Insomnia [Not Recovered/Not Resolved]
  - Decreased appetite [Unknown]
  - Flushing [Not Recovered/Not Resolved]
  - Hot flush [Not Recovered/Not Resolved]
  - Dry skin [Unknown]
  - Fatigue [Unknown]
  - Rash [Unknown]
  - Dysgeusia [Not Recovered/Not Resolved]
  - Nausea [Not Recovered/Not Resolved]
  - Vomiting [Not Recovered/Not Resolved]
